FAERS Safety Report 7552636-7 (Version None)
Quarter: 2011Q2

REPORT INFORMATION
  Report Type: 
  Country: None (occurrence: None)
  Receive Date: 20110616
  Receipt Date: 20110531
  Transmission Date: 20111010
  Serious: Yes (Hospitalization)
  Sender: FDA-Public Use
  Company Number: DE-JNJFOC-20110510459

PATIENT
  Sex: Female
  Weight: 32.5 kg

DRUGS (6)
  1. ANTIBIOTICS [Concomitant]
     Indication: CROHN'S DISEASE
  2. REMICADE [Suspect]
     Indication: CROHN'S DISEASE
     Route: 042
     Dates: start: 20090317, end: 20100413
  3. ACETAMINOPHEN [Concomitant]
  4. IBUPROFEN [Concomitant]
  5. AZATHIOPRINE [Concomitant]
  6. MESALAMINE [Concomitant]
     Route: 054

REACTIONS (1)
  - CROHN'S DISEASE [None]
